FAERS Safety Report 9999213 (Version 6)
Quarter: 2014Q3

REPORT INFORMATION
  Report Type: Report from Study
  Country: AU (occurrence: AU)
  Receive Date: 20140312
  Receipt Date: 20140725
  Transmission Date: 20150326
  Serious: Yes (Death, Hospitalization)
  Sender: FDA-Public Use
  Company Number: AU-ROCHE-1363887

PATIENT
  Age: 78 Year
  Sex: Female

DRUGS (1)
  1. ACTEMRA [Suspect]
     Active Substance: TOCILIZUMAB
     Indication: RHEUMATOID ARTHRITIS
     Route: 042
     Dates: start: 20100119, end: 20140516

REACTIONS (5)
  - Fall [Unknown]
  - Death [Fatal]
  - Hip fracture [Recovered/Resolved]
  - Pneumonia [Unknown]
  - Endocarditis [Unknown]

NARRATIVE: CASE EVENT DATE: 20140227
